FAERS Safety Report 10262744 (Version 2)
Quarter: 2014Q2

REPORT INFORMATION
  Report Type: Spontaneous
  Country: US (occurrence: US)
  Receive Date: 20140626
  Receipt Date: 20140626
  Transmission Date: 20141212
  Serious: Yes (Death)
  Sender: FDA-Public Use
  Company Number: US-MYLANLABS-2013S1013958

PATIENT
  Age: 44 Year
  Sex: Female

DRUGS (3)
  1. CLOZAPINE TABLETS [Suspect]
     Indication: MILD MENTAL RETARDATION
     Dosage: 100MG QAM, 600MG HS
     Route: 048
     Dates: end: 201306
  2. CLOZAPINE TABLETS [Suspect]
     Indication: OFF LABEL USE
     Dosage: 100MG QAM, 600MG HS
     Route: 048
     Dates: end: 201306
  3. DEPAKOTE [Concomitant]
     Indication: AFFECTIVE DISORDER

REACTIONS (1)
  - Pulmonary embolism [Fatal]
